FAERS Safety Report 11695525 (Version 1)
Quarter: 2015Q4

REPORT INFORMATION
  Report Type: Spontaneous
  Country: FR (occurrence: FR)
  Receive Date: 20151104
  Receipt Date: 20151104
  Transmission Date: 20160304
  Serious: Yes (Hospitalization)
  Sender: FDA-Public Use
  Company Number: FR-ASTRAZENECA-2015SF05138

PATIENT
  Age: 26573 Day
  Sex: Female

DRUGS (5)
  1. TERCIAN [Suspect]
     Active Substance: CYAMEMAZINE
     Route: 048
     Dates: start: 20151002, end: 20151002
  2. IMOVANE [Suspect]
     Active Substance: ZOPICLONE
     Route: 048
     Dates: start: 20151002, end: 20151002
  3. TEMESTA [Suspect]
     Active Substance: LORAZEPAM
     Route: 048
     Dates: start: 20151002, end: 20151002
  4. XEROQUEL [Suspect]
     Active Substance: QUETIAPINE FUMARATE
     Route: 048
     Dates: start: 20151002, end: 20151002
  5. BIPROFENID [Suspect]
     Active Substance: KETOPROFEN
     Route: 048
     Dates: start: 20151002, end: 20151002

REACTIONS (3)
  - Wrong drug administered [Recovered/Resolved]
  - Somnolence [Recovered/Resolved]
  - Disorganised speech [Recovered/Resolved]

NARRATIVE: CASE EVENT DATE: 20151002
